FAERS Safety Report 8090931 (Version 2)
Quarter: 2013Q1

REPORT INFORMATION
  Report Type: Spontaneous
  Country: US (occurrence: US)
  Receive Date: 20110816
  Receipt Date: 20130208
  Transmission Date: 20140127
  Serious: Yes (Hospitalization)
  Sender: FDA-Public Use
  Company Number: US-BIOGENIDEC-2011BI030298

PATIENT
  Age: 36 Year
  Sex: Female

DRUGS (1)
  1. TYSABRI [Suspect]
     Indication: MULTIPLE SCLEROSIS
     Route: 042
     Dates: start: 20080722

REACTIONS (5)
  - Menorrhagia [Recovered/Resolved]
  - Haemoptysis [Recovered/Resolved]
  - Unresponsive to stimuli [Recovered/Resolved]
  - Blood pressure decreased [Recovered/Resolved]
  - Poor venous access [Not Recovered/Not Resolved]
